FAERS Safety Report 9087146 (Version 2)
Quarter: 2014Q2

REPORT INFORMATION
  Report Type: Spontaneous
  Country: US (occurrence: US)
  Receive Date: 20130201
  Receipt Date: 20140225
  Transmission Date: 20141212
  Serious: Yes (Other)
  Sender: FDA-Public Use
  Company Number: US-ROCHE-1183276

PATIENT
  Age: 68 Year
  Sex: Female

DRUGS (2)
  1. AVASTIN [Suspect]
     Indication: DIABETIC RETINAL OEDEMA
     Route: 050
     Dates: start: 2011, end: 201301
  2. AVASTIN [Suspect]
     Indication: OFF LABEL USE

REACTIONS (4)
  - Visual acuity reduced [Unknown]
  - Retinal oedema [Unknown]
  - Eye inflammation [Unknown]
  - Cataract [Unknown]
